FAERS Safety Report 4346459-X (Version None)
Quarter: 2004Q1

REPORT INFORMATION
  Report Type: 
  Country: None (occurrence: None)
  Receive Date: 20040325
  Receipt Date: 20040129
  Transmission Date: 20041129
  Serious: No
  Sender: FDA-Public Use
  Company Number: USA030536412

PATIENT
  Age: 83 Year
  Sex: Female
  Weight: 51 kg

DRUGS (7)
  1. FORTEO [Suspect]
     Indication: OSTEOPOROSIS
     Dates: start: 20030201
  2. EVISA (RALOXIFENE HYDROCHLORIDE) [Suspect]
     Indication: OSTEOPOROSIS
     Dosage: 60 MG/DAY
     Dates: start: 20000101
  3. DITROPAN XL [Concomitant]
  4. NEXIUM [Concomitant]
  5. ORPHENADRINE HYDROCHLORIDE FILM TAB [Concomitant]
  6. ASPIRIN [Concomitant]
  7. ZOLOFT [Concomitant]

REACTIONS (4)
  - INJECTION SITE HAEMORRHAGE [None]
  - INJECTION SITE PAIN [None]
  - SKIN WRINKLING [None]
  - VOMITING [None]
